FAERS Safety Report 5646998-5 (Version None)
Quarter: 2008Q1

REPORT INFORMATION
  Report Type: 
  Country: None (occurrence: None)
  Receive Date: 20080303
  Receipt Date: 20080219
  Transmission Date: 20080703
  Serious: Yes (Other)
  Sender: FDA-Public Use
  Company Number: B0508642A

PATIENT
  Age: 60 Year
  Sex: Female

DRUGS (5)
  1. WELLBUTRIN [Suspect]
     Route: 048
     Dates: start: 20080204, end: 20080210
  2. VENLAFAXINE HCL [Concomitant]
     Route: 048
     Dates: start: 20080111
  3. RIVOTRIL [Concomitant]
     Route: 048
     Dates: start: 20080111
  4. DERMOVATE [Concomitant]
     Route: 065
  5. LEVOCETIRIZINE [Concomitant]
     Route: 065

REACTIONS (2)
  - DERMATITIS ALLERGIC [None]
  - SKIN LESION [None]
